FAERS Safety Report 4715162-6 (Version None)
Quarter: 2005Q3

REPORT INFORMATION
  Report Type: 
  Country: None (occurrence: None)
  Receive Date: 20050715
  Receipt Date: 20050706
  Transmission Date: 20060218
  Serious: Yes (Death)
  Sender: FDA-Public Use
  Company Number: FR-GLAXOSMITHKLINE-B0387289A

PATIENT
  Age: 50 Year
  Sex: Male
  Weight: 70 kg

DRUGS (5)
  1. ZYBAN [Suspect]
     Dosage: 150MG PER DAY
     Route: 048
     Dates: start: 20050525, end: 20050527
  2. TOPALGIC (FRANCE) [Concomitant]
     Route: 048
  3. ACETAMINOPHEN [Concomitant]
     Dosage: 4G PER DAY
     Route: 048
  4. PERCUTALGINE [Concomitant]
     Route: 061
  5. BREXIN [Concomitant]
     Dosage: 1UNIT PER DAY
     Route: 048

REACTIONS (1)
  - SUDDEN DEATH [None]
